FAERS Safety Report 8254744 (Version 2)
Quarter: 2012Q4

REPORT INFORMATION
  Report Type: Report from Study
  Country: IT (occurrence: IT)
  Receive Date: 20111118
  Receipt Date: 20121005
  Transmission Date: 20130627
  Serious: Yes (Hospitalization)
  Sender: FDA-Public Use
  Company Number: IT-JNJFOC-20111105893

PATIENT
  Age: 17 Year
  Sex: Male
  Weight: 55.2 kg

DRUGS (4)
  1. REMICADE [Suspect]
     Indication: CROHN^S DISEASE
     Route: 042
     Dates: start: 20110214
  2. PREDNISONE [Concomitant]
  3. PROTON  PUMP INHIBITOR [Concomitant]
  4. ANTIBIOTICS [Concomitant]
     Indication: CROHN^S DISEASE

REACTIONS (2)
  - Gastroenteritis [Recovered/Resolved]
  - Dehydration [Recovered/Resolved]
